FAERS Safety Report 4648568-4 (Version None)
Quarter: 2005Q2

REPORT INFORMATION
  Report Type: 
  Country: None (occurrence: None)
  Receive Date: 20050429
  Receipt Date: 20041214
  Transmission Date: 20051028
  Serious: Yes (Life-Threatening, Hospitalization)
  Sender: FDA-Public Use
  Company Number: CA-AMGEN-US103259

PATIENT
  Age: 60 Year
  Sex: Female

DRUGS (3)
  1. ENBREL [Suspect]
     Indication: RHEUMATOID ARTHRITIS
     Dates: start: 20040201, end: 20041001
  2. ENBREL [Suspect]
     Dates: start: 20050301
  3. GOLD [Concomitant]

REACTIONS (10)
  - ATRIAL FIBRILLATION [None]
  - CONDITION AGGRAVATED [None]
  - COR PULMONALE [None]
  - HAEMOGLOBIN DECREASED [None]
  - PERICARDIAL RUB [None]
  - PERICARDITIS [None]
  - PLEURAL EFFUSION [None]
  - RHEUMATOID ARTHRITIS [None]
  - TUBERCULOSIS [None]
  - WEIGHT DECREASED [None]
